FAERS Safety Report 8188622-6 (Version None)
Quarter: 2012Q1

REPORT INFORMATION
  Report Type: 
  Country: None (occurrence: None)
  Receive Date: 20120306
  Receipt Date: 20120229
  Transmission Date: 20120608
  Serious: Yes (Life-Threatening, Other)
  Sender: FDA-Public Use
  Company Number: US-PFIZER INC-2012055354

PATIENT
  Sex: Male

DRUGS (2)
  1. SIMVASTATIN [Suspect]
     Dosage: UNK
  2. LIPITOR [Suspect]
     Dosage: 40 MG, 1X/DAY

REACTIONS (2)
  - CARDIOVASCULAR DISORDER [None]
  - DIABETES MELLITUS [None]
